FAERS Safety Report 12624796 (Version 3)
Quarter: 2018Q3

REPORT INFORMATION
  Report Type: Report from Study
  Country: CN (occurrence: CN)
  Receive Date: 20160805
  Receipt Date: 20180720
  Transmission Date: 20181010
  Serious: Yes (Other)
  Sender: FDA-Public Use
  Company Number: PHHY2016CN104488

PATIENT
  Age: 44 Year
  Sex: Male

DRUGS (176)
  1. TACROLIMUS. [Suspect]
     Active Substance: TACROLIMUS
     Dosage: 3.5 MG, QD
     Route: 065
     Dates: start: 20160603
  2. METHYLPREDNISOLONE. [Suspect]
     Active Substance: METHYLPREDNISOLONE
     Dosage: 40 MG, PRN
     Route: 042
     Dates: start: 20160524, end: 20160524
  3. SODIUM CHLORIDE. [Concomitant]
     Active Substance: SODIUM CHLORIDE
     Dosage: 2000 ML, PRN
     Route: 042
     Dates: start: 20160510, end: 20160510
  4. SODIUM CHLORIDE. [Concomitant]
     Active Substance: SODIUM CHLORIDE
     Dosage: 100 ML, PRN
     Route: 042
     Dates: start: 20160517, end: 20160517
  5. ALBUMIN [Concomitant]
     Active Substance: ALBUMIN HUMAN
     Dosage: 10 G, PRN
     Route: 042
     Dates: start: 20160522, end: 20160522
  6. BETALOC [Concomitant]
     Active Substance: METOPROLOL TARTRATE
     Dosage: 25 MG, PRN
     Route: 048
     Dates: start: 20160518, end: 20160518
  7. BETALOC [Concomitant]
     Active Substance: METOPROLOL TARTRATE
     Dosage: 25 MG, QD
     Route: 048
     Dates: start: 20160608
  8. COENZYME [Concomitant]
     Active Substance: UBIDECARENONE
     Indication: PRODUCT USED FOR UNKNOWN INDICATION
     Dosage: 2 DF, PRN
     Route: 042
     Dates: start: 20160510, end: 20160510
  9. FUROSEMIDE. [Concomitant]
     Active Substance: FUROSEMIDE
     Dosage: 120 MG, PRN
     Route: 042
     Dates: start: 20160511, end: 20160511
  10. FUROSEMIDE. [Concomitant]
     Active Substance: FUROSEMIDE
     Dosage: 80 MG, PRN
     Route: 042
     Dates: start: 20160522, end: 20160522
  11. LEVOCARNITINE. [Concomitant]
     Active Substance: LEVOCARNITINE
     Dosage: 1 DF, QD
     Route: 042
     Dates: start: 20160511, end: 20160512
  12. MARZULENE?S [Concomitant]
     Active Substance: SODIUM GUALENATE
     Indication: GASTRITIS PROPHYLAXIS
     Dosage: 670 MG, PRN
     Route: 042
     Dates: start: 20160510, end: 20160510
  13. NIFEDIPINE. [Concomitant]
     Active Substance: NIFEDIPINE
     Indication: HYPOTENSION
     Dosage: 10 MG, PRN
     Route: 048
     Dates: start: 20160512, end: 20160512
  14. OMEPRAZOLE SODIUM [Concomitant]
     Active Substance: OMEPRAZOLE SODIUM
     Dosage: 40 MG, PRN
     Route: 042
     Dates: start: 20160518, end: 20160518
  15. OMEPRAZOLE SODIUM [Concomitant]
     Active Substance: OMEPRAZOLE SODIUM
     Dosage: 40 MG, PRN
     Route: 042
     Dates: start: 20160519, end: 20160519
  16. PALONOSETRON HYDROCHLORIDE. [Concomitant]
     Active Substance: PALONOSETRON HYDROCHLORIDE
     Dosage: 25 UG, PRN
     Route: 042
     Dates: start: 20160512, end: 20160512
  17. PHENOBARBITAL SODIUM. [Concomitant]
     Active Substance: PHENOBARBITAL SODIUM
     Indication: SEDATION
     Dosage: 100 MG, PRN
     Route: 030
     Dates: start: 20160509, end: 20160509
  18. POLYENE PHOSPHATIDYLCHOLINE [Concomitant]
     Active Substance: PHOSPHOLIPID
     Indication: PROPHYLAXIS
     Dosage: 456 MG, TID
     Route: 042
     Dates: start: 20160525, end: 20160608
  19. PRAZOSIN HYDROCHLORIDE. [Concomitant]
     Active Substance: PRAZOSIN HYDROCHLORIDE
     Indication: HYPOTENSION
     Dosage: 2 MG, TID
     Route: 048
     Dates: start: 20160517, end: 20160517
  20. PROMETHAZINE HYDROCHLORIDE. [Concomitant]
     Active Substance: PROMETHAZINE HYDROCHLORIDE
     Indication: ALLERGY PROPHYLAXIS
     Dosage: 25 MG, PRN
     Route: 030
     Dates: start: 20160517, end: 20160517
  21. SODIUM NITROPRUSSIDE. [Concomitant]
     Active Substance: SODIUM NITROPRUSSIDE
     Dosage: 50 MG, PRN
     Route: 042
     Dates: start: 20160517, end: 20160517
  22. TALCID [Concomitant]
     Active Substance: HYDROTALCITE
     Dosage: 1000 MG, PRN
     Route: 048
     Dates: start: 20160511, end: 20160517
  23. HYDROTALCITE [Concomitant]
     Active Substance: HYDROTALCITE
     Indication: GASTRITIS PROPHYLAXIS
     Dosage: 1000 MG, TID
     Route: 048
     Dates: start: 20160511, end: 20160517
  24. BASILIXIMAB [Suspect]
     Active Substance: BASILIXIMAB
     Indication: RENAL TRANSPLANT
     Dosage: 20 MG, QD
     Route: 065
     Dates: start: 20160510, end: 20160510
  25. METHYLPREDNISOLONE. [Suspect]
     Active Substance: METHYLPREDNISOLONE
     Indication: ALLERGY PROPHYLAXIS
     Dosage: 500 MG, QD
     Route: 065
     Dates: start: 20160518, end: 20160518
  26. ALBUMIN [Concomitant]
     Active Substance: ALBUMIN HUMAN
     Dosage: 10 G, PRN
     Route: 042
     Dates: start: 20160516, end: 20160516
  27. BICYCLOL [Concomitant]
     Active Substance: BICYCLOL
     Indication: TRANSAMINASES DECREASED
     Dosage: 50 MG, TID
     Route: 048
     Dates: start: 20160525, end: 20160608
  28. AMINO ACID [Concomitant]
     Active Substance: AMINO ACIDS
     Indication: PRODUCT USED FOR UNKNOWN INDICATION
     Dosage: 67 G, PRN
     Route: 042
     Dates: start: 20160510, end: 20160510
  29. COENZYME [Concomitant]
     Active Substance: UBIDECARENONE
     Dosage: 2 DF, QD
     Route: 042
     Dates: start: 20160510, end: 20160511
  30. CRAVIT [Concomitant]
     Active Substance: LEVOFLOXACIN
     Indication: INFECTION PROPHYLAXIS
  31. DOXAZOSIN MESYLATE. [Concomitant]
     Active Substance: DOXAZOSIN MESYLATE
     Dosage: 4 MG, PRN
     Route: 048
     Dates: start: 20160513, end: 20160513
  32. FELODIPINE. [Concomitant]
     Active Substance: FELODIPINE
     Dosage: 5 MG, PRN
     Route: 042
     Dates: start: 20160511, end: 20160511
  33. FUROSEMIDE. [Concomitant]
     Active Substance: FUROSEMIDE
     Dosage: 240 MG, PRN
     Route: 042
     Dates: start: 20160519, end: 20160519
  34. FUROSEMIDE. [Concomitant]
     Active Substance: FUROSEMIDE
     Dosage: 40 MG, PRN
     Route: 042
     Dates: start: 20160528, end: 20160528
  35. NITRENDIPINE [Concomitant]
     Active Substance: NITRENDIPINE
     Dosage: 10 MG, TID
     Route: 042
     Dates: start: 20160516, end: 20160516
  36. OMEPRAZOLE SODIUM [Concomitant]
     Active Substance: OMEPRAZOLE SODIUM
     Dosage: 40 MG, BID
     Route: 042
     Dates: start: 20160511, end: 20160516
  37. GLUTATHIONE [Concomitant]
     Active Substance: GLUTATHIONE
     Dosage: 1200 MG, QD
     Route: 042
     Dates: start: 20160511, end: 20160525
  38. CLOPIDOGREL HYDROGEN SULFATE [Concomitant]
     Active Substance: CLOPIDOGREL BISULFATE
     Dosage: 10 MG, QD
     Route: 048
     Dates: start: 20160608
  39. MYFORTIC [Suspect]
     Active Substance: MYCOPHENOLATE SODIUM
     Dosage: 720 MG, QD
     Route: 048
     Dates: start: 20160602
  40. MYCOPHENOLATE MOFETIL. [Suspect]
     Active Substance: MYCOPHENOLATE MOFETIL
     Indication: RENAL TRANSPLANT
     Dosage: 1000 MG, QD
     Route: 065
     Dates: start: 20160509, end: 20160509
  41. METHYLPREDNISOLONE. [Suspect]
     Active Substance: METHYLPREDNISOLONE
     Dosage: 400 MG, QD
     Route: 065
     Dates: start: 20160519, end: 20160519
  42. SODIUM CHLORIDE. [Concomitant]
     Active Substance: SODIUM CHLORIDE
     Dosage: 100 ML, PRN
     Route: 042
     Dates: start: 20160516, end: 20160516
  43. SODIUM CHLORIDE. [Concomitant]
     Active Substance: SODIUM CHLORIDE
     Dosage: 50 ML, PRN
     Route: 042
     Dates: start: 20160522, end: 20160522
  44. SODIUM CHLORIDE. [Concomitant]
     Active Substance: SODIUM CHLORIDE
     Dosage: 100 ML, QD
     Route: 042
     Dates: start: 20180516, end: 20180516
  45. ADALAT [Concomitant]
     Active Substance: NIFEDIPINE
     Dosage: 30 MG, BID
     Route: 048
     Dates: start: 20160517, end: 20160525
  46. CEPHAZOLINE SODIUM [Concomitant]
     Active Substance: CEFAZOLIN SODIUM
     Indication: PRODUCT USED FOR UNKNOWN INDICATION
     Dosage: 500 MG, PRN
     Route: 042
     Dates: start: 20160510, end: 20160510
  47. CETIRIZINE HYDROCHLORIDE. [Concomitant]
     Active Substance: CETIRIZINE HYDROCHLORIDE
     Dosage: 10 MG, PRN
     Route: 048
     Dates: start: 20160531, end: 20160531
  48. CRAVIT [Concomitant]
     Active Substance: LEVOFLOXACIN
     Indication: INFLAMMATION
     Dosage: 100 ML, PRN
     Route: 042
     Dates: start: 20160509, end: 20160509
  49. DILTIAZEM HYDROCHLORIDE. [Concomitant]
     Active Substance: DILTIAZEM HYDROCHLORIDE
     Indication: HYPOTENSION
     Dosage: 200 MG, PRN
     Route: 042
     Dates: start: 20160510, end: 20160510
  50. DILTIAZEM HYDROCHLORIDE. [Concomitant]
     Active Substance: DILTIAZEM HYDROCHLORIDE
     Indication: DRUG LEVEL INCREASED
     Dosage: 50 MG, PRN
     Route: 042
     Dates: start: 20160510, end: 20160510
  51. DOXAZOSIN MESYLATE. [Concomitant]
     Active Substance: DOXAZOSIN MESYLATE
     Dosage: 4 MG, PRN
     Route: 048
     Dates: start: 20160514, end: 20160514
  52. DOXOFYLLINE [Concomitant]
     Active Substance: DOXOFYLLINE
     Indication: COUGH
     Dosage: 200 MG, PRN
     Route: 042
     Dates: start: 20160510, end: 20160510
  53. FUROSEMIDE. [Concomitant]
     Active Substance: FUROSEMIDE
     Dosage: 120 MG, PRN
     Route: 042
     Dates: start: 20160516, end: 20160516
  54. FUROSEMIDE. [Concomitant]
     Active Substance: FUROSEMIDE
     Dosage: 120 MG, PRN
     Route: 042
     Dates: start: 20160521, end: 20160521
  55. FUROSEMIDE. [Concomitant]
     Active Substance: FUROSEMIDE
     Dosage: 120 MG, PRN
     Route: 042
     Dates: start: 20160524, end: 20160524
  56. HEPARIN SODIUM. [Concomitant]
     Active Substance: HEPARIN SODIUM
     Indication: DEVICE ISSUE
     Dosage: 6250 IU, QD
     Route: 042
     Dates: start: 20160510, end: 20160524
  57. LEVOCARNITINE. [Concomitant]
     Active Substance: LEVOCARNITINE
     Indication: CARDIOVASCULAR EVENT PROPHYLAXIS
     Dosage: 1 DF, PRN
     Route: 042
     Dates: start: 20160510, end: 20160510
  58. LEVOCARNITINE. [Concomitant]
     Active Substance: LEVOCARNITINE
     Dosage: 1 DF, QD
     Route: 042
     Dates: start: 20160510, end: 20160511
  59. HEPARIN CALCIUM [Concomitant]
     Active Substance: HEPARIN CALCIUM
     Dosage: 2500 IU, PRN
     Route: 058
     Dates: start: 20160511, end: 20160522
  60. MAGNESIUM ISOGLYCYRRHIZINATE [Concomitant]
     Active Substance: MAGNESIUM ISOGLYCYRRHIZINATE
     Indication: PROPHYLAXIS
     Dosage: 40 ML, QD
     Route: 042
     Dates: start: 20160525, end: 20160525
  61. NITROGLYCERIN. [Concomitant]
     Active Substance: NITROGLYCERIN
     Dosage: 40 MG, PRN
     Route: 042
     Dates: start: 20160517, end: 20160517
  62. PANTOPRAZOLE [Concomitant]
     Active Substance: PANTOPRAZOLE
     Indication: GASTRITIS PROPHYLAXIS
     Dosage: 40 MG, QD
     Route: 048
     Dates: start: 20160524, end: 20160608
  63. POTASSIUM CHLORIDE. [Concomitant]
     Active Substance: POTASSIUM CHLORIDE
     Indication: PRODUCT USED FOR UNKNOWN INDICATION
     Dosage: 1000 MG, TID
     Route: 048
     Dates: start: 20160512, end: 20160517
  64. PRAZOSIN HYDROCHLORIDE. [Concomitant]
     Active Substance: PRAZOSIN HYDROCHLORIDE
     Dosage: 1000 MG, TID
     Route: 048
     Dates: start: 20160512, end: 20160517
  65. TELMISARTAN. [Concomitant]
     Active Substance: TELMISARTAN
     Indication: HYPOTENSION
     Dosage: 160 MG, PRN
     Route: 048
     Dates: start: 20160511, end: 20160511
  66. METHYLPREDNISOLONE. [Suspect]
     Active Substance: METHYLPREDNISOLONE
     Indication: KIDNEY TRANSPLANT REJECTION
     Dosage: 500 MG, QD
     Route: 065
     Dates: start: 20160509, end: 20160512
  67. METHYLPREDNISOLONE. [Suspect]
     Active Substance: METHYLPREDNISOLONE
     Dosage: 40 MG, PRN
     Route: 042
     Dates: start: 20160531, end: 20160531
  68. PREDNISONE. [Suspect]
     Active Substance: PREDNISONE
     Indication: PRODUCT USED FOR UNKNOWN INDICATION
     Dosage: 20 MG, QD
     Route: 065
     Dates: start: 20160512, end: 20160525
  69. SODIUM CHLORIDE. [Concomitant]
     Active Substance: SODIUM CHLORIDE
     Dosage: 100 ML, QD
     Route: 042
     Dates: start: 20160511, end: 20160517
  70. SODIUM CHLORIDE. [Concomitant]
     Active Substance: SODIUM CHLORIDE
     Dosage: 100 ML, PRN
     Route: 042
     Dates: start: 20160513, end: 20160513
  71. CETIRIZINE HYDROCHLORIDE. [Concomitant]
     Active Substance: CETIRIZINE HYDROCHLORIDE
     Indication: HYPERSENSITIVITY
     Dosage: 10 MG, PRN
     Route: 048
     Dates: start: 20160517, end: 20160517
  72. CETIRIZINE HYDROCHLORIDE. [Concomitant]
     Active Substance: CETIRIZINE HYDROCHLORIDE
     Dosage: 10 MG, PRN
     Route: 048
     Dates: start: 20160524, end: 20160524
  73. COENZYME [Concomitant]
     Active Substance: UBIDECARENONE
     Dosage: 2 DF, PRN
     Route: 042
     Dates: start: 20160514, end: 20160514
  74. DIISOPROPYLAMINE DICHLOROACETATE [Concomitant]
     Dosage: 80 MG, QD
     Route: 042
     Dates: start: 20160510, end: 20160511
  75. DIISOPROPYLAMINE DICHLOROACETATE [Concomitant]
     Dosage: 80 MG, QD
     Route: 042
     Dates: start: 20160511, end: 20160525
  76. DILTIAZEM HYDROCHLORIDE. [Concomitant]
     Active Substance: DILTIAZEM HYDROCHLORIDE
     Dosage: 30 MG, BID
     Route: 048
     Dates: start: 20160510, end: 20160525
  77. DILTIAZEM HYDROCHLORIDE. [Concomitant]
     Active Substance: DILTIAZEM HYDROCHLORIDE
     Indication: DRUG LEVEL DECREASED
     Dosage: 30 MG, BID
     Route: 048
     Dates: start: 20160510, end: 20160525
  78. DOXAZOSIN MESYLATE. [Concomitant]
     Active Substance: DOXAZOSIN MESYLATE
     Indication: HYPOTENSION
     Dosage: 4 MG, PRN
     Route: 048
     Dates: start: 20160511, end: 20160511
  79. FUROSEMIDE. [Concomitant]
     Active Substance: FUROSEMIDE
     Dosage: 80 MG, QD
     Route: 042
     Dates: start: 20160512, end: 20160512
  80. FUROSEMIDE. [Concomitant]
     Active Substance: FUROSEMIDE
     Dosage: 320 MG, QD
     Route: 042
     Dates: start: 20160513, end: 20160513
  81. ALBUMIN HUMAN [Concomitant]
     Active Substance: ALBUMIN HUMAN
     Indication: PRODUCT USED FOR UNKNOWN INDICATION
     Dosage: 10 G, PRN
     Route: 042
     Dates: start: 20160509, end: 20160509
  82. MUCOSOLVAN [Concomitant]
     Active Substance: AMBROXOL HYDROCHLORIDE
     Dosage: 30 MG, TID
     Route: 042
     Dates: start: 20160510, end: 20160523
  83. GLUTATHIONE [Concomitant]
     Active Substance: GLUTATHIONE
     Indication: PROPHYLAXIS
     Dosage: 1200 MG, PRN
     Route: 042
     Dates: start: 20160510, end: 20160510
  84. SODIUM LACTATE. [Concomitant]
     Active Substance: SODIUM LACTATE
     Indication: PRODUCT USED FOR UNKNOWN INDICATION
     Dosage: 2000 ML, PRN
     Route: 042
     Dates: start: 20160510, end: 20160510
  85. TRIMETAZIDINE [Concomitant]
     Active Substance: TRIMETAZIDINE
     Indication: CARDIOVASCULAR EVENT PROPHYLAXIS
     Dosage: 20 MG, TID
     Route: 048
     Dates: start: 20160514, end: 20160608
  86. CLOPIDOGREL HYDROGEN SULFATE [Concomitant]
     Active Substance: CLOPIDOGREL BISULFATE
     Indication: THROMBOSIS PROPHYLAXIS
     Dosage: 10 MG, QD
     Route: 048
     Dates: start: 20160522, end: 20160608
  87. CEFOTIAM HYDROCHLORIDE [Concomitant]
     Active Substance: CEFOTIAM HYDROCHLORIDE
     Indication: INFECTION
  88. GLYCERIN. [Concomitant]
     Active Substance: GLYCERIN
     Indication: PRODUCT USED FOR UNKNOWN INDICATION
  89. MYFORTIC [Suspect]
     Active Substance: MYCOPHENOLATE SODIUM
     Dosage: 1260 MG, QD
     Route: 048
     Dates: start: 20160511, end: 20160529
  90. TACROLIMUS. [Suspect]
     Active Substance: TACROLIMUS
     Dosage: 4.5 MG, QD
     Route: 065
     Dates: start: 20160527, end: 20160531
  91. SODIUM CHLORIDE. [Concomitant]
     Active Substance: SODIUM CHLORIDE
     Dosage: 100 ML, QD
     Route: 042
     Dates: start: 20160531, end: 20160531
  92. ALBUMIN [Concomitant]
     Active Substance: ALBUMIN HUMAN
     Dosage: 20 G, PRN
     Route: 042
     Dates: start: 20160511, end: 20160511
  93. ALBUMIN [Concomitant]
     Active Substance: ALBUMIN HUMAN
     Dosage: 10 G, PRN
     Route: 042
     Dates: start: 20160517, end: 20160517
  94. ALPROSTADIL. [Concomitant]
     Active Substance: ALPROSTADIL
     Dosage: 10 UG, PRN
     Route: 042
     Dates: start: 20160525, end: 20160525
  95. BETALOC [Concomitant]
     Active Substance: METOPROLOL TARTRATE
     Indication: HYPOTENSION
     Dosage: 25 MG, PRN
     Route: 048
     Dates: start: 20160513, end: 20160513
  96. BICYCLOL [Concomitant]
     Active Substance: BICYCLOL
     Dosage: 10 MG, TID
     Route: 048
     Dates: start: 20160608
  97. AMINO ACID [Concomitant]
     Active Substance: AMINO ACIDS
     Dosage: 500 ML, QD
     Route: 042
     Dates: start: 20160510, end: 20160511
  98. DILTIAZEM HYDROCHLORIDE. [Concomitant]
     Active Substance: DILTIAZEM HYDROCHLORIDE
     Dosage: 50 MG, PRN
     Route: 042
     Dates: start: 20160511, end: 20160511
  99. FELODIPINE. [Concomitant]
     Active Substance: FELODIPINE
     Dosage: 5 MG, BID
     Route: 048
     Dates: start: 20160511, end: 20160517
  100. FUROSEMIDE. [Concomitant]
     Active Substance: FUROSEMIDE
     Dosage: 80 MG, PRN
     Route: 042
     Dates: start: 20160519, end: 20160519
  101. FUROSEMIDE. [Concomitant]
     Active Substance: FUROSEMIDE
     Dosage: 120 MG, PRN
     Route: 042
     Dates: start: 20160521, end: 20160521
  102. HEPARIN CALCIUM [Concomitant]
     Active Substance: HEPARIN CALCIUM
     Dosage: 2500 IU, PRN
     Route: 042
     Dates: start: 20160524, end: 20160524
  103. NITRENDIPINE [Concomitant]
     Active Substance: NITRENDIPINE
     Dosage: 10 MG, TID
     Route: 042
     Dates: start: 20160518, end: 20160518
  104. NITROGLYCERIN. [Concomitant]
     Active Substance: NITROGLYCERIN
     Indication: HYPOTENSION
     Dosage: 20 MG, PRN
     Route: 042
     Dates: start: 20160516, end: 20160516
  105. OMEPRAZOLE SODIUM [Concomitant]
     Active Substance: OMEPRAZOLE SODIUM
     Dosage: 40 MG, QD
     Route: 042
     Dates: start: 20160516, end: 20160524
  106. PROMETHAZINE HYDROCHLORIDE. [Concomitant]
     Active Substance: PROMETHAZINE HYDROCHLORIDE
     Dosage: 25 MG, PRN
     Route: 042
     Dates: start: 20160524, end: 20160524
  107. PROMETHAZINE HYDROCHLORIDE. [Concomitant]
     Active Substance: PROMETHAZINE HYDROCHLORIDE
     Dosage: 25 MG, PRN
     Route: 030
     Dates: start: 20160531, end: 20160531
  108. REBAMIPIDE [Concomitant]
     Active Substance: REBAMIPIDE
     Indication: GASTRITIS PROPHYLAXIS
     Dosage: 100 MG, TID
     Route: 048
     Dates: start: 20160512, end: 20160517
  109. GLUTATHIONE [Concomitant]
     Active Substance: GLUTATHIONE
     Dosage: 1200 MG, QD
     Route: 042
     Dates: start: 20160510, end: 20160511
  110. CEFOTIAM HYDROCHLORIDE [Concomitant]
     Active Substance: CEFOTIAM HYDROCHLORIDE
     Indication: INFLAMMATION
     Dosage: 2000 MG, BID
     Route: 042
     Dates: start: 20160511, end: 20160516
  111. MYFORTIC [Suspect]
     Active Substance: MYCOPHENOLATE SODIUM
     Dosage: 900 MG, QD
     Route: 048
     Dates: start: 20160530, end: 20160601
  112. TACROLIMUS. [Suspect]
     Active Substance: TACROLIMUS
     Indication: RENAL TRANSPLANT
     Dosage: 5.5 MG, QD
     Route: 065
     Dates: start: 20160510, end: 20160524
  113. MYCOPHENOLATE MOFETIL. [Suspect]
     Active Substance: MYCOPHENOLATE MOFETIL
     Indication: IMMUNOSUPPRESSANT DRUG THERAPY
  114. SODIUM CHLORIDE. [Concomitant]
     Active Substance: SODIUM CHLORIDE
     Dosage: 200 ML, PRN
     Route: 042
     Dates: start: 20160510, end: 20160510
  115. SODIUM CHLORIDE. [Concomitant]
     Active Substance: SODIUM CHLORIDE
     Dosage: 100 ML, PRN
     Route: 042
     Dates: start: 20160524, end: 20160524
  116. ADALAT [Concomitant]
     Active Substance: NIFEDIPINE
     Dosage: 30 MG, PRN
     Route: 048
     Dates: start: 20160514, end: 20160514
  117. AROTINOLOL HYDROCHLORIDE [Concomitant]
     Active Substance: AROTINOLOL HYDROCHLORIDE
     Indication: HYPOTENSION
     Dosage: 10 MG, BID
     Route: 048
     Dates: start: 20160516, end: 20160601
  118. BETALOC [Concomitant]
     Active Substance: METOPROLOL TARTRATE
     Dosage: 25 MG, PRN
     Route: 048
     Dates: start: 20160513, end: 20160608
  119. COENZYME [Concomitant]
     Active Substance: UBIDECARENONE
     Dosage: 2 DF, QD
     Route: 042
     Dates: start: 20160514, end: 20160516
  120. FUROSEMIDE. [Concomitant]
     Active Substance: FUROSEMIDE
     Dosage: 240 MG, PRN
     Route: 042
     Dates: start: 20160517, end: 20160517
  121. FUROSEMIDE. [Concomitant]
     Active Substance: FUROSEMIDE
     Dosage: 120 MG, PRN
     Route: 042
     Dates: start: 20160525, end: 20160525
  122. FUROSEMIDE. [Concomitant]
     Active Substance: FUROSEMIDE
     Dosage: 40 MG, PRN
     Route: 042
     Dates: start: 20160529, end: 20160529
  123. HEPARIN CALCIUM [Concomitant]
     Active Substance: HEPARIN CALCIUM
     Dosage: 2500 IU, QD
     Route: 042
     Dates: start: 20160511, end: 20160528
  124. NITRENDIPINE [Concomitant]
     Active Substance: NITRENDIPINE
     Indication: HYPOTENSION
     Dosage: 10 MG, PRN
     Route: 042
     Dates: start: 20160511, end: 20160511
  125. NITRENDIPINE [Concomitant]
     Active Substance: NITRENDIPINE
     Dosage: 10 MG, PRN
     Route: 042
     Dates: start: 20160512, end: 20160512
  126. PALONOSETRON HYDROCHLORIDE. [Concomitant]
     Active Substance: PALONOSETRON HYDROCHLORIDE
     Dosage: 0.25 MG, PRN
     Route: 048
     Dates: start: 20160511, end: 20160511
  127. PANTOPRAZOLE [Concomitant]
     Active Substance: PANTOPRAZOLE
     Dosage: 40 MG, QD
     Route: 048
     Dates: start: 20160608
  128. PHOSPHOCREATINE SODIUM [Concomitant]
     Active Substance: PHOSPHOCREATINE SODIUM
     Dosage: 1 G, QD
     Route: 042
     Dates: start: 20160510, end: 20160511
  129. PHOSPHOCREATINE SODIUM [Concomitant]
     Active Substance: PHOSPHOCREATINE SODIUM
     Dosage: 1 G, QD
     Route: 042
     Dates: start: 20160511, end: 20160512
  130. TELMISARTAN. [Concomitant]
     Active Substance: TELMISARTAN
     Dosage: 80 MG, BID
     Route: 048
     Dates: start: 20160511, end: 20160524
  131. CEFOTIAM HYDROCHLORIDE [Concomitant]
     Active Substance: CEFOTIAM HYDROCHLORIDE
     Indication: INFLAMMATION
     Dosage: 2000 MG, PRN
     Route: 042
     Dates: start: 20160510, end: 20160510
  132. CEFOTIAM HYDROCHLORIDE [Concomitant]
     Active Substance: CEFOTIAM HYDROCHLORIDE
     Indication: INFECTION PROPHYLAXIS
     Dosage: 2000 MG, BID
     Route: 042
     Dates: start: 20160510, end: 20160511
  133. HYDROTALCITE [Concomitant]
     Active Substance: HYDROTALCITE
     Dosage: 1000 MG, TID
     Route: 048
     Dates: start: 20160511, end: 20160517
  134. AMBROXOL HYDROCHLORIDE [Concomitant]
     Active Substance: AMBROXOL HYDROCHLORIDE
     Indication: PRODUCTIVE COUGH
     Dosage: 30 MG, TID
     Route: 042
     Dates: start: 20160510, end: 20160523
  135. AMBROXOL HYDROCHLORIDE [Concomitant]
     Active Substance: AMBROXOL HYDROCHLORIDE
     Dosage: 15 MG, TID
     Route: 055
     Dates: start: 20160510, end: 20160523
  136. BASILIXIMAB [Suspect]
     Active Substance: BASILIXIMAB
     Indication: IMMUNOSUPPRESSANT DRUG THERAPY
     Dosage: 20 MG, QD
     Route: 065
     Dates: start: 20160513, end: 20160513
  137. METHYLPREDNISOLONE. [Suspect]
     Active Substance: METHYLPREDNISOLONE
     Dosage: 40 MG, PRN
     Route: 042
     Dates: start: 20160517, end: 20160517
  138. METHYLPREDNISOLONE. [Suspect]
     Active Substance: METHYLPREDNISOLONE
     Dosage: 16 MG, QD
     Route: 065
     Dates: start: 20160526
  139. SODIUM CHLORIDE. [Concomitant]
     Active Substance: SODIUM CHLORIDE
     Dosage: 200 ML, PRN
     Route: 042
     Dates: start: 20160511, end: 20160511
  140. ALBUMIN [Concomitant]
     Active Substance: ALBUMIN HUMAN
     Indication: PRODUCT USED FOR UNKNOWN INDICATION
     Dosage: 20 G, PRN
     Route: 042
     Dates: start: 20160510, end: 20160510
  141. BUDESONIDE. [Concomitant]
     Active Substance: BUDESONIDE
     Indication: PRODUCTIVE COUGH
     Dosage: 1 DF, TID
     Route: 055
     Dates: start: 20160510, end: 20160523
  142. DOXAZOSIN MESYLATE. [Concomitant]
     Active Substance: DOXAZOSIN MESYLATE
     Dosage: 4 MG, BID
     Route: 048
     Dates: start: 20160514, end: 20160517
  143. DOXOFYLLINE [Concomitant]
     Active Substance: DOXOFYLLINE
     Indication: WHEEZING
     Dosage: 200 MG, QD
     Route: 042
     Dates: start: 20160510, end: 20160511
  144. DOXOFYLLINE [Concomitant]
     Active Substance: DOXOFYLLINE
     Dosage: 200 MG, QD
     Route: 042
     Dates: start: 20160511, end: 20160525
  145. ESOMEPRAZOLE MAGNESIUM. [Concomitant]
     Active Substance: ESOMEPRAZOLE MAGNESIUM
     Indication: GASTRITIS PROPHYLAXIS
     Dosage: 20 MG, PRN
     Route: 048
     Dates: start: 20160512, end: 20160512
  146. FUROSEMIDE. [Concomitant]
     Active Substance: FUROSEMIDE
     Dosage: 40 MG, QD
     Route: 042
     Dates: start: 20160511, end: 20160528
  147. FUROSEMIDE. [Concomitant]
     Active Substance: FUROSEMIDE
     Dosage: 160 MG, PRN
     Route: 042
     Dates: start: 20160514, end: 20160514
  148. MUCOSOLVAN [Concomitant]
     Active Substance: AMBROXOL HYDROCHLORIDE
     Indication: PRODUCTIVE COUGH
     Dosage: 30 MG, PRN
     Route: 042
     Dates: start: 20160510, end: 20160510
  149. MUCOSOLVAN [Concomitant]
     Active Substance: AMBROXOL HYDROCHLORIDE
     Dosage: 30 MG, TID
     Route: 055
     Dates: start: 20160510, end: 20160523
  150. NITRENDIPINE [Concomitant]
     Active Substance: NITRENDIPINE
     Dosage: 10 MG, PRN
     Route: 048
     Dates: start: 20160514, end: 20160514
  151. PHOSPHOCREATINE SODIUM [Concomitant]
     Active Substance: PHOSPHOCREATINE SODIUM
     Indication: CARDIOVASCULAR EVENT PROPHYLAXIS
     Dosage: 1 G, PRN
     Route: 042
     Dates: start: 20160510, end: 20160510
  152. PRAZOSIN HYDROCHLORIDE. [Concomitant]
     Active Substance: PRAZOSIN HYDROCHLORIDE
     Indication: ELECTROLYTE SUBSTITUTION THERAPY
     Dosage: 4 MG, TID
     Route: 048
     Dates: start: 20160517, end: 20160521
  153. GLUTATHIONE [Concomitant]
     Active Substance: GLUTATHIONE
     Dosage: 1200 MG, QD
     Route: 042
     Dates: start: 20160511, end: 20160516
  154. MYFORTIC [Suspect]
     Active Substance: MYCOPHENOLATE SODIUM
     Indication: RENAL TRANSPLANT
     Dosage: 1440 MG, QD
     Route: 048
     Dates: start: 20160510, end: 20160510
  155. TACROLIMUS. [Suspect]
     Active Substance: TACROLIMUS
     Indication: IMMUNOSUPPRESSANT DRUG THERAPY
     Dosage: 6 MG, QD
     Route: 065
     Dates: start: 20160525, end: 20160526
  156. SODIUM CHLORIDE. [Concomitant]
     Active Substance: SODIUM CHLORIDE
     Indication: DEVICE ISSUE
     Dosage: 100 ML, PRN
     Route: 042
     Dates: start: 20160509, end: 20160509
  157. ADALAT [Concomitant]
     Active Substance: NIFEDIPINE
     Indication: HYPOTENSION
     Dosage: 30 MG, PRN
     Route: 048
     Dates: start: 20160511, end: 20160511
  158. ALPROSTADIL. [Concomitant]
     Active Substance: ALPROSTADIL
     Indication: CARDIOVASCULAR INSUFFICIENCY
     Dosage: 10 UG, PRN
     Route: 042
     Dates: start: 20160510, end: 20160510
  159. DIISOPROPYLAMINE DICHLOROACETATE [Concomitant]
     Indication: PROPHYLAXIS
     Dosage: 80 MG, PRN
     Route: 048
     Dates: start: 20160510, end: 20160510
  160. IPRATROPIUM BROMIDE. [Concomitant]
     Active Substance: IPRATROPIUM BROMIDE
     Indication: PRODUCTIVE COUGH
     Dosage: 1 DF, TID
     Route: 055
     Dates: start: 20160510, end: 20160523
  161. DOPAMINE HYDROCHLORIDE. [Concomitant]
     Active Substance: DOPAMINE HYDROCHLORIDE
     Indication: CARDIOVASCULAR INSUFFICIENCY
     Dosage: 10 MG, PRN
     Route: 042
     Dates: start: 20160511, end: 20160511
  162. DOPAMINE HYDROCHLORIDE. [Concomitant]
     Active Substance: DOPAMINE HYDROCHLORIDE
     Dosage: 10 MG, QD
     Route: 042
     Dates: start: 20160511, end: 20160528
  163. FELODIPINE. [Concomitant]
     Active Substance: FELODIPINE
     Indication: HYPOTENSION
     Dosage: 5 MG, PRN
     Route: 048
     Dates: start: 20160511, end: 20160511
  164. FUROSEMIDE. [Concomitant]
     Active Substance: FUROSEMIDE
     Indication: POLYURIA
     Dosage: 80 MG, PRN
     Route: 042
     Dates: start: 20160510, end: 20160510
  165. LEVOCARNITINE. [Concomitant]
     Active Substance: LEVOCARNITINE
     Dosage: 1 DF, QD
     Route: 042
     Dates: start: 20160512, end: 20160525
  166. HEPARIN CALCIUM [Concomitant]
     Active Substance: HEPARIN CALCIUM
     Indication: COAGULOPATHY
     Dosage: 2500 IU, QD
     Route: 042
     Dates: start: 20160511, end: 20160511
  167. HEPARIN CALCIUM [Concomitant]
     Active Substance: HEPARIN CALCIUM
     Dosage: 2500 IU, PRN
     Route: 042
     Dates: start: 20160517, end: 20160517
  168. MAGNESIUM ISOGLYCYRRHIZINATE [Concomitant]
     Active Substance: MAGNESIUM ISOGLYCYRRHIZINATE
     Dosage: 40 ML, PRN
     Route: 042
     Dates: start: 20160525, end: 20160525
  169. NITRENDIPINE [Concomitant]
     Active Substance: NITRENDIPINE
     Dosage: 10 MG, PRN
     Route: 048
     Dates: start: 20160511, end: 20160511
  170. OMEPRAZOLE SODIUM [Concomitant]
     Active Substance: OMEPRAZOLE SODIUM
     Indication: GASTRITIS PROPHYLAXIS
     Dosage: 40 MG, PRN
     Route: 042
     Dates: start: 20160510, end: 20160510
  171. OMEPRAZOLE SODIUM [Concomitant]
     Active Substance: OMEPRAZOLE SODIUM
     Dosage: 40 MG, BID
     Route: 042
     Dates: start: 20160510, end: 20160511
  172. PALONOSETRON HYDROCHLORIDE. [Concomitant]
     Active Substance: PALONOSETRON HYDROCHLORIDE
     Indication: VOMITING
     Dosage: 0.25 MG, PRN
     Route: 042
     Dates: start: 20160510, end: 20160510
  173. SCOPOLAMINE HYDROBROMIDE. [Concomitant]
     Active Substance: SCOPOLAMINE HYDROBROMIDE
     Indication: GASTROINTESTINAL DISORDER
     Dosage: 300 UG, PRN
     Route: 030
     Dates: start: 20160509, end: 20160509
  174. SODIUM NITROPRUSSIDE. [Concomitant]
     Active Substance: SODIUM NITROPRUSSIDE
     Indication: HYPOTENSION
     Dosage: 50 MG, PRN
     Route: 042
     Dates: start: 20160516, end: 20160516
  175. TALCID [Concomitant]
     Active Substance: HYDROTALCITE
     Indication: GASTRITIS PROPHYLAXIS
     Dosage: 1000 MG, PRN
     Route: 048
     Dates: start: 20160511, end: 20160511
  176. DIISOPROPYLAMINE DICHLOROACETATE [Concomitant]
     Indication: PROPHYLAXIS
     Dosage: 80 MG, QD
     Route: 042
     Dates: start: 20160511, end: 20160516

REACTIONS (15)
  - Kidney transplant rejection [Recovering/Resolving]
  - Alanine aminotransferase increased [Unknown]
  - White blood cell count decreased [Unknown]
  - Platelet count decreased [Unknown]
  - Lymphocyte count decreased [Unknown]
  - Blood urea increased [Unknown]
  - Haemoglobin decreased [Unknown]
  - Urine analysis abnormal [Unknown]
  - Aspartate aminotransferase increased [Unknown]
  - High density lipoprotein decreased [Unknown]
  - Neutrophil count increased [Unknown]
  - Blood triglycerides increased [Unknown]
  - Blood glucose increased [Unknown]
  - Constipation [Recovered/Resolved with Sequelae]
  - Abdominal pain upper [Recovered/Resolved]

NARRATIVE: CASE EVENT DATE: 20160511
